FAERS Safety Report 10861340 (Version 2)
Quarter: 2015Q2

REPORT INFORMATION
  Report Type: Spontaneous
  Country: US (occurrence: US)
  Receive Date: 20150224
  Receipt Date: 20150401
  Transmission Date: 20150821
  Serious: Yes (Death, Hospitalization)
  Sender: FDA-Public Use
  Company Number: US-JNJFOC-20150214629

PATIENT

DRUGS (4)
  1. HYDROCORTISONE. [Suspect]
     Active Substance: HYDROCORTISONE
     Indication: SEPTIC SHOCK
     Route: 065
  2. DOPAMINE [Suspect]
     Active Substance: DOPAMINE\DOPAMINE HYDROCHLORIDE
     Indication: PRODUCT USED FOR UNKNOWN INDICATION
     Dosage: 7.9 MUG/KG/MIN (COMBINATION GROUP) VS. 13 MUG/KG/MIN (HYDROCORTISONE ALONE GROUP)
     Route: 065
  3. FLUDROCORTISONE [Suspect]
     Active Substance: FLUDROCORTISONE
     Indication: SEPTIC SHOCK
     Dosage: FLUDROCORTISONE 50 MUG DAILY
     Route: 065
  4. NOREPINEPHRINE [Suspect]
     Active Substance: NOREPINEPHRINE\NOREPINEPHRINE BITARTRATE
     Indication: PRODUCT USED FOR UNKNOWN INDICATION
     Dosage: 0.11 MUG/KG/MIN; N=6 (COMBINATION GROUP) VS 0.12 MUG/KG/MIN; N=5 (HYDROCORTISONE ALONE GROUP)
     Route: 065

REACTIONS (3)
  - Organ failure [Unknown]
  - Death [Fatal]
  - Adverse drug reaction [Unknown]
